FAERS Safety Report 9254245 (Version 1)
Quarter: 2013Q2

REPORT INFORMATION
  Report Type: Spontaneous
  Country: GB (occurrence: GB)
  Receive Date: 20130425
  Receipt Date: 20130425
  Transmission Date: 20140414
  Serious: Yes (Hospitalization, Other)
  Sender: FDA-Public Use
  Company Number: PHFR2013GB002310

PATIENT
  Sex: Male

DRUGS (2)
  1. CLOZARIL [Suspect]
     Indication: SCHIZOPHRENIA
     Dosage: UNK
     Route: 048
     Dates: start: 20051014
  2. PARACETAMOL [Suspect]
     Dosage: UNK

REACTIONS (4)
  - Sepsis [Unknown]
  - General physical condition abnormal [Unknown]
  - Overdose [Unknown]
  - Hepatic function abnormal [Unknown]
